FAERS Safety Report 9688348 (Version 1)
Quarter: 2013Q4

REPORT INFORMATION
  Report Type: Spontaneous
  Country: FR (occurrence: FR)
  Receive Date: 20131114
  Receipt Date: 20131114
  Transmission Date: 20140711
  Serious: Yes (Life-Threatening)
  Sender: FDA-Public Use
  Company Number: FR-GE HEALTHCARE MEDICAL DIAGNOSTICS-VISP-PR-1311S-0894

PATIENT
  Age: 62 Year
  Sex: Female

DRUGS (3)
  1. VISIPAQUE [Suspect]
     Indication: PRODUCT USED FOR UNKNOWN INDICATION
     Route: 042
     Dates: start: 20131001, end: 20131001
  2. VISIPAQUE [Suspect]
     Indication: DIAGNOSTIC PROCEDURE
  3. GLUSCAN [Suspect]
     Route: 042
     Dates: start: 20131001, end: 20131001

REACTIONS (3)
  - Oedema mucosal [Recovered/Resolved]
  - Skin oedema [Recovered/Resolved]
  - Pruritus [Recovered/Resolved]
